FAERS Safety Report 11158836 (Version 1)
Quarter: 2015Q2

REPORT INFORMATION
  Report Type: Spontaneous
  Country: US (occurrence: None)
  Receive Date: 20150601
  Receipt Date: 20150601
  Transmission Date: 20150821
  Serious: Yes (Other)
  Sender: FDA-Public Use
  Company Number: None

PATIENT
  Age: 28 Year
  Sex: Female
  Weight: 96.16 kg

DRUGS (6)
  1. CETIRIZINE [Concomitant]
     Active Substance: CETIRIZINE HYDROCHLORIDE
  2. TRAZODONE [Suspect]
     Active Substance: TRAZODONE HYDROCHLORIDE
     Indication: MENTAL DISORDER
     Dosage: TAKE ONE-HALF TO TWO TABLETS ONCE DAILY
     Route: 048
     Dates: start: 20150116, end: 20150528
  3. WARFARIN [Concomitant]
     Active Substance: WARFARIN
  4. LAMICTAL [Concomitant]
     Active Substance: LAMOTRIGINE
  5. SINGULAIR [Concomitant]
     Active Substance: MONTELUKAST SODIUM
  6. TYLENOL [Concomitant]
     Active Substance: ACETAMINOPHEN

REACTIONS (5)
  - Parosmia [None]
  - Hangover [None]
  - Headache [None]
  - Diarrhoea [None]
  - Feeling drunk [None]

NARRATIVE: CASE EVENT DATE: 20150116
